FAERS Safety Report 8146884-5 (Version None)
Quarter: 2012Q1

REPORT INFORMATION
  Report Type: 
  Country: None (occurrence: None)
  Receive Date: 20120217
  Receipt Date: 20110912
  Transmission Date: 20120608
  Serious: Yes (Other)
  Sender: FDA-Public Use
  Company Number: DE-ABBOTT-12P-062-0905380-00

PATIENT
  Sex: Female
  Weight: 75 kg

DRUGS (3)
  1. NORVIR [Suspect]
     Indication: PRODUCT USED FOR UNKNOWN INDICATION
     Dosage: 20 CAPSULES
     Route: 048
     Dates: start: 20110912, end: 20110912
  2. TRUVADA 200/245 [Concomitant]
     Indication: PRODUCT USED FOR UNKNOWN INDICATION
  3. PRECISTA [Concomitant]
     Indication: PRODUCT USED FOR UNKNOWN INDICATION

REACTIONS (2)
  - SUICIDE ATTEMPT [None]
  - ABDOMINAL PAIN LOWER [None]
